FAERS Safety Report 14402115 (Version 3)
Quarter: 2019Q2

REPORT INFORMATION
  Report Type: Report from Study
  Country: US (occurrence: US)
  Receive Date: 20180117
  Receipt Date: 20190516
  Transmission Date: 20190711
  Serious: Yes (Hospitalization)
  Sender: FDA-Public Use
  Company Number: US-B.I. PHARMACEUTICALS,INC./RIDGEFIELD-2017-BI-049041

PATIENT
  Sex: Male

DRUGS (4)
  1. OFEV [Suspect]
     Active Substance: NINTEDANIB
     Route: 048
     Dates: start: 20170828, end: 20171025
  2. OFEV [Suspect]
     Active Substance: NINTEDANIB
     Indication: IDIOPATHIC PULMONARY FIBROSIS
     Route: 048
     Dates: start: 20170818
  3. OFEV [Suspect]
     Active Substance: NINTEDANIB
     Route: 048
     Dates: start: 20171026
  4. OFEV [Suspect]
     Active Substance: NINTEDANIB
     Route: 048

REACTIONS (14)
  - Adverse drug reaction [Unknown]
  - Insomnia [Unknown]
  - Weight decreased [Unknown]
  - Abdominal rigidity [Unknown]
  - Gastrooesophageal reflux disease [Unknown]
  - Abdominal distension [Unknown]
  - Dyspnoea [Unknown]
  - Cough [Unknown]
  - Spinal fracture [Not Recovered/Not Resolved]
  - Secretion discharge [Unknown]
  - Productive cough [Unknown]
  - Abdominal distension [Recovered/Resolved with Sequelae]
  - Abdominal discomfort [Unknown]
  - Decreased appetite [Unknown]
